FAERS Safety Report 6967311-7 (Version None)
Quarter: 2010Q3

REPORT INFORMATION
  Report Type: 
  Country: None (occurrence: None)
  Receive Date: 20100907
  Receipt Date: 20100825
  Transmission Date: 20110219
  Serious: Yes (Other)
  Sender: FDA-Public Use
  Company Number: US-JNJFOC-20100900403

PATIENT
  Sex: Female
  Weight: 79.38 kg

DRUGS (4)
  1. FENTANYL CITRATE [Suspect]
     Indication: RHEUMATOID ARTHRITIS
     Route: 062
  2. FENTANYL CITRATE [Suspect]
     Indication: SYSTEMIC LUPUS ERYTHEMATOSUS
     Route: 062
  3. FENTANYL CITRATE [Suspect]
     Route: 062
  4. FENTANYL CITRATE [Suspect]
     Route: 062

REACTIONS (11)
  - ADVERSE EVENT [None]
  - APPLICATION SITE EROSION [None]
  - APPLICATION SITE REACTION [None]
  - DIARRHOEA [None]
  - DYSPHAGIA [None]
  - MALAISE [None]
  - MASS [None]
  - MUSCLE TWITCHING [None]
  - NAUSEA [None]
  - PRODUCT ADHESION ISSUE [None]
  - TREMOR [None]
